FAERS Safety Report 21404343 (Version 2)
Quarter: 2022Q4

REPORT INFORMATION
  Report Type: Spontaneous
  Country: US (occurrence: US)
  Receive Date: 20221003
  Receipt Date: 20221006
  Transmission Date: 20230113
  Serious: No
  Sender: FDA-Public Use
  Company Number: US-SANOFI-01298733

PATIENT
  Age: 71 Year
  Sex: Male

DRUGS (1)
  1. TOUJEO MAX [Suspect]
     Active Substance: INSULIN GLARGINE
     Indication: Type 2 diabetes mellitus
     Dosage: 60 U (DRUG TREATMENT DURATION:5 YEARS OR MORE 60 UNITS QHS)
     Dates: start: 2017

REACTIONS (3)
  - Vomiting [Unknown]
  - Illness [Unknown]
  - Intentional device use issue [Unknown]
